FAERS Safety Report 16742961 (Version 1)
Quarter: 2019Q3

REPORT INFORMATION
  Report Type: Spontaneous
  Country: DE (occurrence: DE)
  Receive Date: 20190827
  Receipt Date: 20190827
  Transmission Date: 20191005
  Serious: Yes (Hospitalization)
  Sender: FDA-Public Use
  Company Number: DE-SA-2019SA231373

PATIENT
  Age: 11 Year
  Sex: Male
  Weight: 52 kg

DRUGS (2)
  1. LANTUS [Suspect]
     Active Substance: INSULIN GLARGINE
     Indication: TYPE 1 DIABETES MELLITUS
     Dosage: DOSAGE ACCORDING TO BZ
     Route: 058
  2. NOVORAPID [Suspect]
     Active Substance: INSULIN ASPART
     Indication: TYPE 1 DIABETES MELLITUS
     Dosage: APPLICATION AFTER THE MEAL
     Route: 058

REACTIONS (7)
  - Ketosis [Recovered/Resolved]
  - Vomiting [Recovered/Resolved]
  - Treatment noncompliance [Unknown]
  - Underdose [Unknown]
  - Nausea [Recovered/Resolved]
  - Blood glucose increased [Recovered/Resolved]
  - Product administration error [Unknown]

NARRATIVE: CASE EVENT DATE: 20181006
